FAERS Safety Report 4548910-9 (Version None)
Quarter: 2004Q4

REPORT INFORMATION
  Report Type: 
  Country: None (occurrence: None)
  Receive Date: 20041227
  Receipt Date: 20041122
  Transmission Date: 20050328
  Serious: No
  Sender: FDA-Public Use
  Company Number: 04P-163-0281179-00

PATIENT
  Age: 64 Year
  Sex: Female
  Weight: 89.8122 kg

DRUGS (8)
  1. HUMIRA [Suspect]
     Indication: RHEUMATOID ARTHRITIS
     Dosage: 40 MG, 1 IN 2 WK, SUBCUTANEOUS
     Route: 058
     Dates: start: 20041001
  2. PREDNISONE [Concomitant]
  3. METHOTREXATE SODIUM [Concomitant]
  4. FOLIC ACID [Concomitant]
  5. QUINAPRIL HYDROCHLORIDE [Concomitant]
  6. CLONIDINE [Concomitant]
  7. NAPROXEN [Concomitant]
  8. ALENDRONATE SODIUM [Concomitant]

REACTIONS (3)
  - BACK PAIN [None]
  - DYSURIA [None]
  - POLLAKIURIA [None]
